FAERS Safety Report 4558736-8 (Version None)
Quarter: 2005Q1

REPORT INFORMATION
  Report Type: 
  Country: None (occurrence: None)
  Receive Date: 20050121
  Receipt Date: 20050121
  Transmission Date: 20050727
  Serious: Yes (Hospitalization)
  Sender: FDA-Public Use
  Company Number: None

PATIENT
  Age: 43 Year
  Sex: Male
  Weight: 74 kg

DRUGS (9)
  1. BUPIVACAINE [Suspect]
     Indication: PAIN
     Dosage: INTRATHECA
     Route: 037
     Dates: start: 20040101, end: 20050114
  2. ZELNORM [Concomitant]
  3. ZANAFLEX [Concomitant]
  4. KLONOPIN [Concomitant]
  5. VALIUM [Concomitant]
  6. ATENOLOL [Concomitant]
  7. DITROPAN [Concomitant]
  8. LISINOPRIL [Concomitant]
  9. INTRATHECAL PAIN PUMP [Concomitant]

REACTIONS (2)
  - ABDOMINAL PAIN [None]
  - MUSCLE SPASMS [None]
